FAERS Safety Report 7330686-3 (Version None)
Quarter: 2011Q1

REPORT INFORMATION
  Report Type: 
  Country: None (occurrence: None)
  Receive Date: 20110304
  Receipt Date: 20100928
  Transmission Date: 20110831
  Serious: Yes (Death, Other)
  Sender: FDA-Public Use
  Company Number: US-BAYER-201032089NA

PATIENT
  Sex: Female
  Weight: 54.422 kg

DRUGS (10)
  1. CLARITIN [Concomitant]
     Indication: HYPERSENSITIVITY
     Dosage: UNK
     Dates: start: 20000101
  2. OCELLA [Suspect]
     Indication: PRODUCT USED FOR UNKNOWN INDICATION
  3. HERBALS NOS W/VITAMINS NOS [Concomitant]
     Dosage: UNK
     Dates: start: 20060101
  4. YAZ [Suspect]
     Indication: ACNE
     Dosage: UNK
     Dates: start: 20070101, end: 20090101
  5. YASMIN [Suspect]
     Indication: PRODUCT USED FOR UNKNOWN INDICATION
  6. PROTEINS NOS [Concomitant]
     Dosage: UNK
     Dates: start: 20050101
  7. CALCIUM [Concomitant]
     Dosage: UNK
     Dates: start: 20050101
  8. MELATONIN [Concomitant]
     Indication: SLEEP DISORDER THERAPY
     Dosage: UNK
     Dates: start: 20060101
  9. NSAID'S [Concomitant]
  10. IRON [Concomitant]
     Dosage: UNK
     Dates: start: 20050101

REACTIONS (11)
  - EMBOLISM ARTERIAL [None]
  - HYPERTENSION [None]
  - BENIGN HEPATIC NEOPLASM [None]
  - DEEP VEIN THROMBOSIS [None]
  - MYOCARDIAL INFARCTION [None]
  - HEPATIC ADENOMA [None]
  - THROMBOPHLEBITIS [None]
  - PULMONARY EMBOLISM [None]
  - CEREBRAL THROMBOSIS [None]
  - GALLBLADDER DISORDER [None]
  - CEREBRAL HAEMORRHAGE [None]
